FAERS Safety Report 7875415-X (Version None)
Quarter: 2011Q4

REPORT INFORMATION
  Report Type: 
  Country: None (occurrence: None)
  Receive Date: 20111031
  Receipt Date: 20111019
  Transmission Date: 20120403
  Serious: Yes (Hospitalization)
  Sender: FDA-Public Use
  Company Number: PHFR2011IE03923

PATIENT
  Sex: Female

DRUGS (7)
  1. CLOZARIL [Suspect]
     Indication: SCHIZOPHRENIA
     Route: 048
     Dates: start: 19990908, end: 20110701
  2. VALPROIC ACID [Concomitant]
     Indication: CONVULSION
     Dosage: 2000 MG/DAY
     Route: 048
  3. PANTOPRAZOLE [Concomitant]
     Indication: OESOPHAGITIS
     Dosage: 20 MG/DAY
     Route: 048
  4. PANTOPRAZOLE [Concomitant]
     Indication: GASTROOESOPHAGEAL REFLUX DISEASE
  5. CLOZARIL [Suspect]
     Dosage: 325 MG/DAY
     Route: 048
  6. MIRTAZAPINE [Concomitant]
     Indication: DEPRESSION
     Dosage: 15 MG/DAY
     Route: 048
  7. METFORMIN HCL [Concomitant]
     Indication: TYPE 2 DIABETES MELLITUS
     Dosage: 1000 MG/DAY
     Route: 048

REACTIONS (3)
  - ATAXIA [None]
  - DYSARTHRIA [None]
  - ASTHENIA [None]
